FAERS Safety Report 5186957-2 (Version None)
Quarter: 2006Q4

REPORT INFORMATION
  Report Type: 
  Country: None (occurrence: None)
  Receive Date: 20061213
  Receipt Date: 20061130
  Transmission Date: 20070319
  Serious: Yes (Other)
  Sender: FDA-Public Use
  Company Number: 2006129564

PATIENT
  Age: 76 Year
  Sex: Female
  Weight: 60.782 kg

DRUGS (2)
  1. SUTENT [Suspect]
     Indication: RENAL CELL CARCINOMA STAGE UNSPECIFIED
     Dosage: 25 MG, ORAL; 50 MG, ORAL
     Route: 048
     Dates: start: 20060930, end: 20061006
  2. SUTENT [Suspect]
     Indication: RENAL CELL CARCINOMA STAGE UNSPECIFIED
     Dosage: 25 MG, ORAL; 50 MG, ORAL
     Route: 048
     Dates: start: 20061007, end: 20061014

REACTIONS (1)
  - LACTIC ACIDOSIS [None]
